FAERS Safety Report 7358512-7 (Version None)
Quarter: 2011Q1

REPORT INFORMATION
  Report Type: 
  Country: None (occurrence: None)
  Receive Date: 20110317
  Receipt Date: 20100319
  Transmission Date: 20110831
  Serious: Yes (Hospitalization, Disabling)
  Sender: FDA-Public Use
  Company Number: US-B.I. PHARMACEUTICALS,INC./RIDGEFIELD-2010-BP-01588BP

PATIENT
  Age: 46 Year
  Sex: Male
  Weight: 111.58 kg

DRUGS (3)
  1. OXYCODONE HCL [Concomitant]
  2. FLOMAX [Suspect]
     Indication: NEPHROLITHIASIS
     Dosage: 0.45 MG
     Route: 048
     Dates: start: 20100129, end: 20100202
  3. SIMVASTATIN [Concomitant]

REACTIONS (7)
  - ISCHAEMIC STROKE [None]
  - WALLENBERG SYNDROME [None]
  - LABYRINTHITIS [None]
  - NAUSEA [None]
  - DIZZINESS [None]
  - VOMITING [None]
  - VISUAL IMPAIRMENT [None]
